FAERS Safety Report 24701042 (Version 1)
Quarter: 2024Q4

REPORT INFORMATION
  Report Type: Report from Study
  Country: US (occurrence: US)
  Receive Date: 20241205
  Receipt Date: 20241205
  Transmission Date: 20250114
  Serious: Yes (Other)
  Sender: NOVARTIS
  Company Number: US-002147023-NVSC2024US231295

PATIENT
  Sex: Female
  Weight: 98 kg

DRUGS (1)
  1. LEQVIO [Suspect]
     Active Substance: INCLISIRAN SODIUM
     Indication: Blood cholesterol increased
     Dosage: 284 MG, ONCE/SINGLE
     Route: 058
     Dates: start: 20241001, end: 20241001

REACTIONS (3)
  - Urticaria [Recovering/Resolving]
  - Rash [Unknown]
  - Blister [Unknown]
